FAERS Safety Report 6800347-5 (Version None)
Quarter: 2010Q2

REPORT INFORMATION
  Report Type: 
  Country: None (occurrence: None)
  Receive Date: 20100616
  Receipt Date: 20100609
  Transmission Date: 20101027
  Serious: Yes (Hospitalization)
  Sender: FDA-Public Use
  Company Number: 2010SP032445

PATIENT
  Age: 21 Year
  Sex: Female

DRUGS (5)
  1. MIRTAZAPINE [Suspect]
     Indication: DRUG USE FOR UNKNOWN INDICATION
     Dosage: 315 MG; PO
     Route: 048
  2. TRAMADOL HCL [Suspect]
     Indication: DRUG USE FOR UNKNOWN INDICATION
     Dosage: 3000 MG; PO
     Route: 048
  3. ESCITALOPRAM [Suspect]
     Indication: DRUG USE FOR UNKNOWN INDICATION
     Dosage: 560 MG; PO
     Route: 048
  4. FLUOXETINE HCL [Suspect]
     Indication: DRUG USE FOR UNKNOWN INDICATION
     Dosage: 1100 MG; PO
     Route: 048
  5. RISPERIDONE [Suspect]
     Indication: DRUG USE FOR UNKNOWN INDICATION
     Dosage: 120 MG; PO
     Route: 048

REACTIONS (3)
  - DRUG INTERACTION [None]
  - MULTIPLE DRUG OVERDOSE [None]
  - SEROTONIN SYNDROME [None]
